FAERS Safety Report 6621521-7 (Version None)
Quarter: 2010Q1

REPORT INFORMATION
  Report Type: 
  Country: None (occurrence: None)
  Receive Date: 20100309
  Receipt Date: 20100212
  Transmission Date: 20100710
  Serious: Yes (Other)
  Sender: FDA-Public Use
  Company Number: GB-BAYER-PMF0242

PATIENT
  Age: 37 Year
  Sex: Female

DRUGS (1)
  1. NIFEDIPINE [Suspect]
     Indication: PREGNANCY INDUCED HYPERTENSION
     Route: 060

REACTIONS (7)
  - CAESAREAN SECTION [None]
  - CLONUS [None]
  - HEADACHE [None]
  - HYPERREFLEXIA [None]
  - HYPOTENSION [None]
  - PROTEINURIA [None]
  - VISUAL IMPAIRMENT [None]
